FAERS Safety Report 21437143 (Version 1)
Quarter: 2022Q4

REPORT INFORMATION
  Report Type: Report from Study
  Country: US (occurrence: US)
  Receive Date: 20221010
  Receipt Date: 20221010
  Transmission Date: 20230112
  Serious: Yes (Death, Other)
  Sender: FDA-Public Use
  Company Number: US-BoehringerIngelheim-2022-BI-189557

PATIENT
  Age: 74 Year
  Sex: Female
  Weight: 45.5 kg

DRUGS (6)
  1. NINTEDANIB [Suspect]
     Active Substance: NINTEDANIB
     Indication: Hypersensitivity pneumonitis
     Route: 048
     Dates: start: 20190621, end: 20220826
  2. ALBUTEROL PROAIR 90 MCG/INH [Concomitant]
     Indication: Hypersensitivity pneumonitis
     Dosage: 2 PUFFS
     Route: 055
     Dates: start: 2019, end: 20220827
  3. HYDROCHLORATHIAZIDE LOSARTAN [Concomitant]
     Indication: Essential hypertension
     Dosage: 12.5/100 MG
     Route: 048
     Dates: start: 20191119, end: 2022
  4. PREDNISONE [Concomitant]
     Active Substance: PREDNISONE
     Indication: Hypersensitivity pneumonitis
     Route: 048
     Dates: start: 20180807, end: 20220823
  5. ROSUVASTATIN [Concomitant]
     Active Substance: ROSUVASTATIN
     Indication: Hypercholesterolaemia
     Route: 048
     Dates: start: 20190306, end: 20220826
  6. PROTONIX [Concomitant]
     Active Substance: PANTOPRAZOLE SODIUM
     Indication: Gastrooesophageal reflux disease
     Route: 048
     Dates: start: 20140730, end: 20220826

REACTIONS (4)
  - Acute respiratory failure [Fatal]
  - Pneumonia [Fatal]
  - Septic shock [Fatal]
  - Intentional product use issue [Unknown]

NARRATIVE: CASE EVENT DATE: 20220823
